FAERS Safety Report 6464533-9 (Version None)
Quarter: 2009Q4

REPORT INFORMATION
  Report Type: 
  Country: None (occurrence: None)
  Receive Date: 20091201
  Receipt Date: 20091118
  Transmission Date: 20100525
  Serious: Yes (Hospitalization, Other)
  Sender: FDA-Public Use
  Company Number: JP-PFIZER INC-2009290621

PATIENT
  Age: 62 Year
  Sex: Female
  Weight: 34.3 kg

DRUGS (6)
  1. CHAMPIX [Suspect]
     Indication: SMOKING CESSATION THERAPY
     Dosage: 0.5 MG, 1X/DAY
     Route: 048
     Dates: start: 20091023, end: 20091023
  2. SOLANAX [Concomitant]
     Dosage: UNK
     Route: 048
     Dates: start: 20070821, end: 20091026
  3. MEILAX [Concomitant]
     Route: 048
     Dates: end: 20091026
  4. SELBEX [Concomitant]
     Route: 048
     Dates: end: 20091026
  5. PRIMPERAN TAB [Concomitant]
     Route: 048
     Dates: end: 20091026
  6. BIOFERMIN [Concomitant]
     Route: 048
     Dates: start: 20090714, end: 20091026

REACTIONS (12)
  - ASTHENIA [None]
  - BLOOD CREATINE PHOSPHOKINASE INCREASED [None]
  - BLOOD SODIUM DECREASED [None]
  - CEREBRAL INFARCTION [None]
  - CHILLS [None]
  - DECREASED APPETITE [None]
  - DYSARTHRIA [None]
  - GAIT DISTURBANCE [None]
  - MUSCULAR WEAKNESS [None]
  - MYALGIA [None]
  - NAUSEA [None]
  - SOMNOLENCE [None]
